FAERS Safety Report 17362130 (Version 1)
Quarter: 2020Q1

REPORT INFORMATION
  Report Type: Spontaneous
  Country: CH (occurrence: CH)
  Receive Date: 20200203
  Receipt Date: 20200203
  Transmission Date: 20200409
  Serious: Yes (Hospitalization, Other)
  Sender: FDA-Public Use
  Company Number: CH-PFIZER INC-2020038851

PATIENT
  Age: 73 Year
  Sex: Male
  Weight: 92 kg

DRUGS (15)
  1. ALDACTONE [Suspect]
     Active Substance: SPIRONOLACTONE
     Indication: HYPERTENSION
  2. NITRODERM MATRIX [Concomitant]
     Active Substance: NITROGLYCERIN
     Dosage: UNK
  3. COMILORID [Suspect]
     Active Substance: HYDROCHLOROTHIAZIDE
     Indication: CORONARY ARTERY DISEASE
     Dosage: UNK, 1X/DAY
  4. COMILORID [Suspect]
     Active Substance: HYDROCHLOROTHIAZIDE
     Indication: HYPERTENSION
  5. LANTUS [Concomitant]
     Active Substance: INSULIN GLARGINE
     Dosage: UNK
  6. CARDIAX ASS [Concomitant]
     Active Substance: ASPIRIN
     Dosage: UNK
  7. BISOPROLOL MEPHA [Concomitant]
     Dosage: UNK
  8. JARDIANCE MET [Concomitant]
     Active Substance: EMPAGLIFLOZIN\METFORMIN HYDROCHLORIDE
     Dosage: UNK
  9. PANPRAX [Concomitant]
     Active Substance: PANTOPRAZOLE SODIUM
     Dosage: UNK
  10. EXFORGE [Suspect]
     Active Substance: AMLODIPINE BESYLATE\VALSARTAN
     Indication: CORONARY ARTERY DISEASE
     Dosage: UNK, 2X/DAY
  11. EXFORGE [Suspect]
     Active Substance: AMLODIPINE BESYLATE\VALSARTAN
     Indication: HYPERTENSION
  12. CLOPIDRAX [Concomitant]
     Dosage: UNK
  13. ALDACTONE [Suspect]
     Active Substance: SPIRONOLACTONE
     Indication: CORONARY ARTERY DISEASE
     Dosage: 25 MG, DAILY
     Route: 048
  14. ATORVASTAX [Concomitant]
     Dosage: UNK
  15. EZETIMIBA/SIMVASTATINA [Concomitant]
     Dosage: UNK

REACTIONS (3)
  - Hyperkalaemia [Recovered/Resolved]
  - Metabolic acidosis [Recovered/Resolved]
  - Myocardial infarction [Unknown]

NARRATIVE: CASE EVENT DATE: 20191230
